FAERS Safety Report 20744169 (Version 3)
Quarter: 2022Q2

REPORT INFORMATION
  Report Type: Spontaneous
  Country: PL (occurrence: PL)
  Receive Date: 20220425
  Receipt Date: 20220511
  Transmission Date: 20220721
  Serious: Yes (Hospitalization, Other)
  Sender: FDA-Public Use
  Company Number: PL-002147023-NVSC2022PL064106

PATIENT
  Age: 68 Year
  Sex: Female

DRUGS (3)
  1. METHOTREXATE [Suspect]
     Active Substance: METHOTREXATE
     Indication: Arthritis
     Dosage: 15 MILLIGRAM, QD (THE PATIENT WAS TAKING MTX EVERY DAY FOR THE NEXT 11 DAYS)
     Route: 065
  2. METHOTREXATE [Suspect]
     Active Substance: METHOTREXATE
     Dosage: 15 MILLIGRAM, QW (15 MG PER WEEK, IMPROPER DAILY INTAKE OF THE DRUG
     Route: 065
  3. FOLIC ACID [Concomitant]
     Active Substance: FOLIC ACID
     Dosage: UNK

REACTIONS (10)
  - Toxicity to various agents [Unknown]
  - Inappropriate schedule of product administration [Unknown]
  - Accidental overdose [Unknown]
  - Product administration error [Unknown]
  - Mouth ulceration [Unknown]
  - Pain [Recovered/Resolved]
  - Stomatitis [Recovered/Resolved]
  - Pyrexia [Unknown]
  - Overdose [Unknown]
  - Medication error [Unknown]
